FAERS Safety Report 9436779 (Version 1)
Quarter: 2013Q3

REPORT INFORMATION
  Report Type: Spontaneous
  Country: CA (occurrence: CA)
  Receive Date: 20130802
  Receipt Date: 20130802
  Transmission Date: 20140515
  Serious: Yes (Other)
  Sender: FDA-Public Use
  Company Number: CA-VERTEX PHARMACEUTICALS INC-2013-008440

PATIENT
  Age: 53 Year
  Sex: Male

DRUGS (7)
  1. INCIVEK [Suspect]
     Indication: HEPATITIS C
     Dosage: 750 MG, TID
     Route: 048
  2. PEGASYS [Suspect]
     Indication: HEPATITIS C
     Dosage: 180 ?G, QW
  3. PEGASYS [Suspect]
     Dosage: 180 ?G, QW
  4. PEGASYS [Suspect]
     Dosage: 180 ?G, QW
  5. RIBAVIRIN [Suspect]
     Indication: HEPATITIS C
     Dosage: 1000 MG, QD
  6. RIBAVIRIN [Suspect]
     Dosage: 1000 MG, QD
  7. RIBAVIRIN [Suspect]
     Dosage: 1000 MG, QD

REACTIONS (2)
  - Rash [Unknown]
  - Anaemia [Unknown]
